FAERS Safety Report 9491436 (Version 2)
Quarter: 2013Q1

REPORT INFORMATION
  Report Type: Not Available
  Country: US (occurrence: US)
  Receive Date: 20120619
  Receipt Date: 20120619
  Transmission Date: 20140127
  Serious: Yes (Hospitalization)
  Sender: FDA-Public Use
  Company Number: US-LUNDBECK-DKLU1075723

PATIENT
  Age: 19 None
  Sex: Female
  Weight: 43.2 kg

DRUGS (10)
  1. CLOBAZAM [Suspect]
     Indication: LENNOX-GASTAUT SYNDROME
     Route: 048
     Dates: start: 20091020
  2. CALCIUM [Concomitant]
     Indication: MINERAL SUPPLEMENTATION
     Route: 048
     Dates: start: 20090610
  3. VITAMIN D [Concomitant]
     Indication: VITAMIN SUPPLEMENTATION
     Route: 048
     Dates: start: 20090610
  4. MIRALAX [Concomitant]
     Indication: CONSTIPATION
     Route: 048
     Dates: start: 20090827
  5. RETIN-A [Concomitant]
     Indication: ACNE
     Route: 050
     Dates: start: 20091216
  6. TRANXENE T-TAB [Concomitant]
     Indication: CONVULSION
     Route: 048
     Dates: start: 20100421
  7. LORAZEPAM [Concomitant]
     Indication: CONVULSION
     Route: 048
     Dates: start: 20100421
  8. PREGABALIN [Concomitant]
     Indication: CONVULSION
     Route: 048
     Dates: start: 2008
  9. CLORAZEPATE DIPOTASSIUM [Concomitant]
     Indication: CONVULSION
     Route: 048
     Dates: start: 20071017
  10. LAMOTRIGINE [Concomitant]
     Indication: CONVULSION
     Route: 048
     Dates: start: 2003

REACTIONS (1)
  - Convulsion [Recovered/Resolved]
